FAERS Safety Report 7033957-3 (Version None)
Quarter: 2010Q4

REPORT INFORMATION
  Report Type: 
  Country: None (occurrence: None)
  Receive Date: 20101005
  Receipt Date: 20100923
  Transmission Date: 20110411
  Serious: Yes (Hospitalization)
  Sender: FDA-Public Use
  Company Number: 2010GW000771

PATIENT
  Sex: Female
  Weight: 43.0917 kg

DRUGS (3)
  1. FLECAINIDE ACETATE [Suspect]
     Indication: ATRIAL FIBRILLATION
     Dosage: 300 MG; X1; PO
     Route: 048
     Dates: start: 20100424, end: 20100424
  2. COZAAR [Concomitant]
  3. MAXZIDE [Concomitant]

REACTIONS (7)
  - ABDOMINAL DISCOMFORT [None]
  - ATRIAL FIBRILLATION [None]
  - CARDIAC ARREST [None]
  - CONFUSIONAL STATE [None]
  - GASTRIC DISORDER [None]
  - OVERDOSE [None]
  - PNEUMONIA ASPIRATION [None]
